FAERS Safety Report 20737413 (Version 9)
Quarter: 2022Q3

REPORT INFORMATION
  Report Type: Report from Study
  Country: US (occurrence: US)
  Receive Date: 20220421
  Receipt Date: 20220928
  Transmission Date: 20221027
  Serious: Yes (Hospitalization, Other)
  Sender: FDA-Public Use
  Company Number: US-JNJFOC-20211013277

PATIENT
  Age: 61 Year
  Sex: Female
  Weight: 78.6 kg

DRUGS (10)
  1. SELEXIPAG [Suspect]
     Active Substance: SELEXIPAG
     Indication: Pulmonary arterial hypertension
     Route: 048
  2. SELEXIPAG [Suspect]
     Active Substance: SELEXIPAG
     Indication: Pulmonary hypertension
     Route: 048
  3. REVATIO [Suspect]
     Active Substance: SILDENAFIL CITRATE
     Indication: Product used for unknown indication
     Route: 065
  4. ATORVASTATIN [Suspect]
     Active Substance: ATORVASTATIN
     Indication: Product used for unknown indication
     Route: 065
  5. LOVASTATIN [Suspect]
     Active Substance: LOVASTATIN
     Indication: Product used for unknown indication
     Route: 065
  6. REPATHA [Suspect]
     Active Substance: EVOLOCUMAB
     Indication: Product used for unknown indication
     Route: 065
  7. AMBRISENTAN [Suspect]
     Active Substance: AMBRISENTAN
     Indication: Product used for unknown indication
     Route: 065
  8. WARFARIN [Concomitant]
     Active Substance: WARFARIN
  9. SILDENAFIL CITRATE [Concomitant]
     Active Substance: SILDENAFIL CITRATE
  10. DILTIAZEM [Concomitant]
     Active Substance: DILTIAZEM

REACTIONS (28)
  - Kidney infection [Unknown]
  - Sepsis [Unknown]
  - Hysterectomy [Unknown]
  - Pain [Unknown]
  - Fatigue [Unknown]
  - Hernia [Unknown]
  - Stent placement [Unknown]
  - Dyspnoea [Not Recovered/Not Resolved]
  - Colonoscopy [Unknown]
  - Urinary tract infection [Unknown]
  - Respiratory tract infection [Not Recovered/Not Resolved]
  - Pneumonia [Unknown]
  - Giardiasis [Unknown]
  - Oxygen saturation decreased [Recovering/Resolving]
  - Anaemia [Recovering/Resolving]
  - Nasal discharge discolouration [Unknown]
  - Dizziness [Not Recovered/Not Resolved]
  - Hyperhidrosis [Unknown]
  - Muscular weakness [Unknown]
  - Pain in extremity [Unknown]
  - Procedural pain [Unknown]
  - Hernia repair [Unknown]
  - Cautery to nose [Unknown]
  - Headache [Unknown]
  - Influenza like illness [Unknown]
  - Aphonia [Unknown]
  - Condition aggravated [Unknown]
  - Inflammation [Unknown]

NARRATIVE: CASE EVENT DATE: 20210930
